FAERS Safety Report 9269571 (Version 1)
Quarter: 2013Q2

REPORT INFORMATION
  Report Type: Spontaneous
  Country: FR (occurrence: FR)
  Receive Date: 20130503
  Receipt Date: 20130503
  Transmission Date: 20140414
  Serious: Yes (Hospitalization)
  Sender: FDA-Public Use
  Company Number: FR-PFIZER INC-2013134336

PATIENT
  Age: 45 Year
  Sex: Male

DRUGS (2)
  1. ADVIL [Suspect]
     Indication: PAIN
     Dosage: ONE TO THREE 400 MG TABLETS DAILY PRN
     Route: 065
  2. LERCAN [Suspect]
     Indication: HYPERTENSION
     Dosage: 20 MG, 1X/DAY
     Route: 065
     Dates: start: 20120319

REACTIONS (1)
  - Stress fracture [Recovered/Resolved]
